FAERS Safety Report 24976850 (Version 1)
Quarter: 2025Q1

REPORT INFORMATION
  Report Type: Spontaneous
  Country: US (occurrence: US)
  Receive Date: 20250217
  Receipt Date: 20250217
  Transmission Date: 20250408
  Serious: No
  Sender: MYLAN
  Company Number: US-MYLANLABS-2025M1011648

PATIENT
  Weight: 65.7 kg

DRUGS (1)
  1. GABAPENTIN [Suspect]
     Active Substance: GABAPENTIN
     Indication: Restless legs syndrome
     Dosage: 1200 MILLIGRAM, QD (2 TABLETS, ONCE A DAY)
     Route: 065

REACTIONS (1)
  - Off label use [Unknown]
